FAERS Safety Report 9229150 (Version 3)
Quarter: 2014Q3

REPORT INFORMATION
  Report Type: Report from Study
  Country: JP (occurrence: JP)
  Receive Date: 20130412
  Receipt Date: 20140815
  Transmission Date: 20150326
  Serious: Yes (Hospitalization)
  Sender: FDA-Public Use
  Company Number: JP-MERCK-1209JPN010405

PATIENT
  Age: 81 Year
  Sex: Female
  Weight: 50 kg

DRUGS (8)
  1. ARICEPT [Concomitant]
     Active Substance: DONEPEZIL HYDROCHLORIDE
     Dosage: UNK
     Dates: end: 20130620
  2. WARKMIN [Concomitant]
     Active Substance: ALFACALCIDOL
     Dosage: UNK
     Dates: end: 20120613
  3. ANTUP R [Concomitant]
     Dosage: UNK
     Dates: end: 20120208
  4. AMARYL [Concomitant]
     Active Substance: GLIMEPIRIDE
     Dosage: UNK
     Dates: start: 20110511, end: 20130628
  5. GLACTIV [Suspect]
     Active Substance: SITAGLIPTIN
     Indication: TYPE 2 DIABETES MELLITUS
     Dosage: STRENGTH: 25MG, 50 MG, 100MG, 50 MG, QD
     Route: 048
     Dates: start: 20101206
  6. AMLODIN (AMLODIPINE BESYLATE) [Concomitant]
     Active Substance: AMLODIPINE BESYLATE
  7. BAYASPIRIN [Concomitant]
     Active Substance: ASPIRIN
     Dosage: UNK
     Dates: end: 20120613
  8. FRANDOL [Concomitant]
     Active Substance: ISOSORBIDE DINITRATE
     Dosage: UNK
     Dates: start: 20120209

REACTIONS (2)
  - Pneumonia [Recovered/Resolved]
  - Cerebral infarction [Recovered/Resolved]

NARRATIVE: CASE EVENT DATE: 20110216
